FAERS Safety Report 7809504-2 (Version None)
Quarter: 2011Q4

REPORT INFORMATION
  Report Type: 
  Country: None (occurrence: None)
  Receive Date: 20111012
  Receipt Date: 20110930
  Transmission Date: 20120403
  Serious: Yes (Other)
  Sender: FDA-Public Use
  Company Number: PHEH2011US05638

PATIENT
  Sex: Female

DRUGS (4)
  1. DIOVAN HCT [Suspect]
     Dosage: 320 MG VALS/ 25 MG HCT, PER DAY
  2. CATAPRES [Suspect]
     Dosage: 0.1 MG, UNK
  3. ASPIRIN [Concomitant]
     Dosage: 81 MG, UNK
  4. LOTREL [Suspect]
     Dosage: 5-20 MG PER DAY

REACTIONS (1)
  - THROMBOSIS [None]
